FAERS Safety Report 11972835 (Version 2)
Quarter: 2016Q2

REPORT INFORMATION
  Report Type: Report from Study
  Country: BE (occurrence: BE)
  Receive Date: 20160128
  Receipt Date: 20160419
  Transmission Date: 20160815
  Serious: Yes (Other)
  Sender: FDA-Public Use
  Company Number: BE-ABBVIE-16K-013-1543605-00

PATIENT
  Age: 10 Year
  Sex: Female
  Weight: 46.3 kg

DRUGS (2)
  1. METHOTREXATE [Suspect]
     Active Substance: METHOTREXATE
     Indication: PRODUCT USED FOR UNKNOWN INDICATION
     Route: 065
     Dates: start: 200906, end: 201601
  2. HUMIRA [Suspect]
     Active Substance: ADALIMUMAB
     Indication: JUVENILE IDIOPATHIC ARTHRITIS
     Route: 058
     Dates: start: 20151127, end: 20160118

REACTIONS (1)
  - Focal nodular hyperplasia [Unknown]

NARRATIVE: CASE EVENT DATE: 20160118
